FAERS Safety Report 11789834 (Version 2)
Quarter: 2015Q4

REPORT INFORMATION
  Report Type: Report from Study
  Country: DE (occurrence: DE)
  Receive Date: 20151201
  Receipt Date: 20151204
  Transmission Date: 20160305
  Serious: Yes (Death)
  Sender: FDA-Public Use
  Company Number: PHHY2014DE152524

PATIENT
  Age: 76 Year
  Sex: Male

DRUGS (4)
  1. GLIVEC [Suspect]
     Active Substance: IMATINIB MESYLATE
     Indication: NEOPLASM
  2. TASIGNA [Suspect]
     Active Substance: NILOTINIB
     Indication: CLONAL EVOLUTION
  3. TASIGNA [Suspect]
     Active Substance: NILOTINIB
     Indication: BLAST CELL CRISIS
     Dosage: 300 MG, BID
     Route: 048
     Dates: start: 20140319
  4. GLIVEC [Suspect]
     Active Substance: IMATINIB MESYLATE
     Indication: MYELOPROLIFERATIVE DISORDER
     Dosage: 100 MG, QD
     Route: 048
     Dates: start: 201211, end: 201403

REACTIONS (2)
  - Iron overload [Unknown]
  - Blast cell crisis [Fatal]

NARRATIVE: CASE EVENT DATE: 20121228
